FAERS Safety Report 7889701-0 (Version None)
Quarter: 2011Q4

REPORT INFORMATION
  Report Type: 
  Country: None (occurrence: None)
  Receive Date: 20111103
  Receipt Date: 20110718
  Transmission Date: 20120403
  Serious: Yes (Hospitalization, Other)
  Sender: FDA-Public Use
  Company Number: US-ELI_LILLY_AND_COMPANY-US201105000312

PATIENT
  Sex: Female

DRUGS (20)
  1. FISH OIL [Concomitant]
     Dosage: 1000 MG, UNKNOWN
     Route: 065
  2. GLUCOSINE [Concomitant]
     Dosage: UNK, UNKNOWN
     Route: 065
  3. MAGNESIUM OXIDE [Concomitant]
     Dosage: 400 MG, UNKNOWN
     Route: 065
  4. SENOKOT [Concomitant]
     Dosage: UNK, BID
     Route: 065
  5. ASPIRIN [Concomitant]
     Dosage: 81 MG, UNKNOWN
     Route: 065
  6. CALCIUM [Concomitant]
     Dosage: 1200 DF, UNKNOWN
     Route: 065
  7. COLACE [Concomitant]
     Dosage: 100 MG, BID
     Route: 065
  8. NATURAL TEARS [Concomitant]
     Dosage: UNK, EACH EVENING
     Route: 065
  9. VITAMIN TAB [Concomitant]
     Dosage: UNK, UNKNOWN
     Route: 065
  10. VITAMIN E [Concomitant]
     Dosage: 400 MG, QD
     Route: 065
  11. VITAMIN B-12 [Concomitant]
     Dosage: 2000 UG, MONTHLY (1/M)
     Route: 065
  12. ASCORBIC ACID [Concomitant]
     Dosage: 1000 MG, QD
     Route: 065
  13. IRON [Concomitant]
     Dosage: 130 MG, BID
     Route: 065
  14. LOTENSIN [Concomitant]
     Dosage: 10 MG, BID
     Route: 065
  15. REMERON [Concomitant]
     Dosage: 15 MG, EACH EVENING
     Route: 065
  16. NORVASC [Concomitant]
     Dosage: 5 MG, BID
     Route: 065
  17. FORTEO [Suspect]
     Indication: OSTEOPOROSIS
     Dosage: 20 UG, QD
     Route: 065
  18. GENTEAL [Concomitant]
     Indication: DRY EYE
     Dosage: UNK, EACH EVENING
     Route: 047
  19. LIDODERM [Concomitant]
     Dosage: UNK, OTHER
     Route: 065
  20. CARDIZEM [Concomitant]
     Dosage: UNK, UNKNOWN
     Route: 065

REACTIONS (8)
  - HEART RATE IRREGULAR [None]
  - EXTRASYSTOLES [None]
  - PRESYNCOPE [None]
  - URINARY TRACT INFECTION [None]
  - OBSTRUCTION [None]
  - HEART RATE DECREASED [None]
  - DIZZINESS [None]
  - GAIT DISTURBANCE [None]
